FAERS Safety Report 20195900 (Version 1)
Quarter: 2021Q4

REPORT INFORMATION
  Report Type: Spontaneous
  Country: GB (occurrence: GB)
  Receive Date: 20211216
  Receipt Date: 20211216
  Transmission Date: 20220303
  Serious: Yes (Death)
  Sender: FDA-Public Use
  Company Number: None

PATIENT
  Age: 34 Year
  Sex: Male
  Weight: 99 kg

DRUGS (4)
  1. OLANZAPINE [Interacting]
     Active Substance: OLANZAPINE
     Indication: Bipolar disorder
     Dosage: UNK UNK, UNKNOWN
     Route: 065
  2. ELEXACAFTOR\IVACAFTOR\TEZACAFTOR [Interacting]
     Active Substance: ELEXACAFTOR\IVACAFTOR\TEZACAFTOR
     Indication: Cystic fibrosis
     Dosage: UNK, UNKNOWN
     Route: 048
     Dates: start: 20200330, end: 20210827
  3. VALIUM [Interacting]
     Active Substance: DIAZEPAM
     Indication: Anxiety
     Dosage: UNK, UNKNOWN
     Route: 065
  4. METHADONE [Interacting]
     Active Substance: METHADONE HYDROCHLORIDE
     Indication: Drug dependence
     Dosage: UNK, UNKNOWN
     Route: 065

REACTIONS (4)
  - Organ failure [Fatal]
  - Toxicity to various agents [Fatal]
  - Drug interaction [Unknown]
  - Drug-disease interaction [Unknown]

NARRATIVE: CASE EVENT DATE: 20210827
